FAERS Safety Report 5007599-5 (Version None)
Quarter: 2006Q2

REPORT INFORMATION
  Report Type: 
  Country: None (occurrence: None)
  Receive Date: 20060522
  Receipt Date: 20060308
  Transmission Date: 20061013
  Serious: Yes (Death, Hospitalization)
  Sender: FDA-Public Use
  Company Number: 2006AP01118

PATIENT
  Age: 22151 Day
  Sex: Female

DRUGS (9)
  1. IRESSA [Suspect]
     Indication: NON-SMALL CELL LUNG CANCER
     Route: 048
     Dates: start: 20060125
  2. MAGNESIUM OXIDE [Concomitant]
     Indication: ANTACID THERAPY
     Route: 048
     Dates: start: 20020101
  3. TRAMODOL HOL [Concomitant]
     Indication: PAIN
     Route: 048
     Dates: start: 20060105
  4. IOIPIDOM [Concomitant]
     Indication: INSOMNIA
     Route: 048
     Dates: start: 20020101
  5. ROSIGLITAZOME [Concomitant]
     Indication: DIABETES MELLITUS
     Route: 048
     Dates: start: 19980101
  6. GLIBENCLAMIDE [Concomitant]
     Indication: DIABETES MELLITUS
     Route: 048
     Dates: start: 19980101
  7. METFORMIN [Concomitant]
     Indication: DIABETES MELLITUS
     Route: 048
     Dates: start: 19980101
  8. ACARBOSE [Concomitant]
     Indication: DIABETES MELLITUS
     Route: 048
     Dates: start: 19980101
  9. DEXTROMETHORPHAN [Concomitant]
     Indication: COUGH
     Route: 048
     Dates: start: 20051226, end: 20060202

REACTIONS (4)
  - HAEMOPTYSIS [None]
  - PNEUMONIA [None]
  - PYREXIA [None]
  - RESPIRATORY FAILURE [None]
